FAERS Safety Report 6747884-X (Version None)
Quarter: 2010Q2

REPORT INFORMATION
  Report Type: 
  Country: None (occurrence: None)
  Receive Date: 20100528
  Receipt Date: 20100518
  Transmission Date: 20101027
  Serious: Yes (Death)
  Sender: FDA-Public Use
  Company Number: US-JNJFOC-20100509290

PATIENT
  Age: 3 Year
  Sex: Male
  Weight: 13 kg

DRUGS (4)
  1. REMICADE [Suspect]
     Indication: DRUG USE FOR UNKNOWN INDICATION
     Route: 042
  2. PROGRAF [Suspect]
     Indication: BONE MARROW TRANSPLANT
  3. CELLCEPT [Concomitant]
  4. METHYLPREDNISOLONE [Concomitant]

REACTIONS (29)
  - ADENOVIRUS INFECTION [None]
  - AUTONOMIC NERVOUS SYSTEM IMBALANCE [None]
  - CARDIAC ARREST [None]
  - CHOREOATHETOSIS [None]
  - COMA [None]
  - CONVULSION [None]
  - CSF CULTURE POSITIVE [None]
  - DEATH [None]
  - DEMENTIA [None]
  - DIABETES INSIPIDUS [None]
  - DIABETES MELLITUS [None]
  - DIARRHOEA [None]
  - FEBRILE NEUTROPENIA [None]
  - GENERALISED OEDEMA [None]
  - GRAFT VERSUS HOST DISEASE [None]
  - HAEMATEMESIS [None]
  - HEPATOMEGALY [None]
  - HYPERCALCAEMIA [None]
  - HYPOTHALAMO-PITUITARY DISORDER [None]
  - INAPPROPRIATE ANTIDIURETIC HORMONE SECRETION [None]
  - LIVER FUNCTION TEST ABNORMAL [None]
  - NERVE INJURY [None]
  - OXYGEN SATURATION DECREASED [None]
  - PARALYSIS [None]
  - PROGRESSIVE MULTIFOCAL LEUKOENCEPHALOPATHY [None]
  - PUPILLARY REFLEX IMPAIRED [None]
  - RENAL FAILURE ACUTE [None]
  - RESPIRATORY RATE DECREASED [None]
  - VIRAL INFECTION [None]
